FAERS Safety Report 6221327-7 (Version None)
Quarter: 2009Q2

REPORT INFORMATION
  Report Type: 
  Country: None (occurrence: None)
  Receive Date: 20090610
  Receipt Date: 20090513
  Transmission Date: 20091009
  Serious: No
  Sender: FDA-Public Use
  Company Number: US-BAYER-200911508BCC

PATIENT
  Age: 31 Year
  Sex: Male
  Weight: 120 kg

DRUGS (1)
  1. ALEVE (CAPLET) [Suspect]
     Indication: INTERVERTEBRAL DISC PROTRUSION
     Dosage: TOTAL DAILY DOSE: 440 MG  UNIT DOSE: 220 MG
     Route: 048
     Dates: start: 20080101, end: 20090513

REACTIONS (1)
  - DRUG SCREEN FALSE POSITIVE [None]
